FAERS Safety Report 8814155 (Version 1)
Quarter: 2012Q4

REPORT INFORMATION
  Report Type: 
  Country: FR (occurrence: FR)
  Receive Date: 20120928
  Receipt Date: 20120928
  Transmission Date: 20130627
  Serious: Yes (Other)
  Sender: FDA-Public Use
  Company Number: FR-009507513-1209FRA010761

PATIENT
  Age: 16 Year
  Sex: Female

DRUGS (4)
  1. SINGULAIR [Suspect]
     Indication: ASTHMA
     Dosage: 10 mg, qd
     Route: 048
     Dates: start: 20120425, end: 20120429
  2. KESTIN [Concomitant]
     Indication: ASTHMA
     Dosage: 10 mg, UNK
     Route: 048
  3. AIROMIR [Concomitant]
     Indication: ASTHMA
     Dosage: UNK UNK, prn
     Route: 055
     Dates: start: 20120425
  4. FLIXOTIDE [Concomitant]
     Indication: ASTHMA
     Dosage: 250 Microgram, bid
     Route: 055
     Dates: start: 20120425

REACTIONS (1)
  - Delirium [Recovered/Resolved]
